FAERS Safety Report 8540885-0 (Version None)
Quarter: 2012Q3

REPORT INFORMATION
  Report Type: 
  Country: None (occurrence: None)
  Receive Date: 20120726
  Receipt Date: 20120720
  Transmission Date: 20120928
  Serious: No
  Sender: FDA-Public Use
  Company Number: US-PFIZER INC-2012176410

PATIENT
  Sex: Female
  Weight: 77 kg

DRUGS (3)
  1. XALATAN [Suspect]
     Indication: GLAUCOMA
     Dosage: UNKNOWN DOSE IN BOTH THE EYES, 1X/DAY
     Route: 047
     Dates: start: 20020101
  2. TOPROL-XL [Concomitant]
     Indication: HYPERTENSION
     Dosage: UNK
  3. LIPITOR [Concomitant]
     Indication: BLOOD CHOLESTEROL INCREASED
     Dosage: UNK

REACTIONS (3)
  - ARTHRITIS [None]
  - SUPERFICIAL INJURY OF EYE [None]
  - DRUG ADMINISTRATION ERROR [None]
